FAERS Safety Report 14900712 (Version 1)
Quarter: 2018Q2

REPORT INFORMATION
  Report Type: Spontaneous
  Country: US (occurrence: US)
  Receive Date: 20180516
  Receipt Date: 20180516
  Transmission Date: 20180711
  Serious: No
  Sender: FDA-Public Use
  Company Number: US-PFIZER INC-2018199790

PATIENT

DRUGS (1)
  1. CELECOXIB. [Suspect]
     Active Substance: CELECOXIB
     Dosage: UNK UNK, DAILY [5-6 OF THE GENERIC A DAY]

REACTIONS (2)
  - Intentional product misuse [Unknown]
  - Drug ineffective [Unknown]
